FAERS Safety Report 9148090 (Version 5)
Quarter: 2014Q1

REPORT INFORMATION
  Report Type: Report from Study
  Country: US (occurrence: US)
  Receive Date: 20130308
  Receipt Date: 20140310
  Transmission Date: 20141002
  Serious: Yes (Other)
  Sender: FDA-Public Use
  Company Number: US-BIOGENIDEC-2013BI021632

PATIENT
  Age: 45 Year
  Sex: Male
  Weight: 78 kg

DRUGS (8)
  1. NATALIZUMAB [Suspect]
     Indication: SECONDARY PROGRESSIVE MULTIPLE SCLEROSIS
     Route: 042
     Dates: start: 20120409, end: 20121126
  2. TRICOR [Concomitant]
     Indication: HYPERCHOLESTEROLAEMIA
     Route: 048
     Dates: start: 2010
  3. LISINOPRIL-HYDROCHLOROTHIAZIDE [Concomitant]
     Indication: HYPERTENSION
     Route: 048
     Dates: start: 2010
  4. VESICARE [Concomitant]
     Indication: MICTURITION URGENCY
     Route: 048
     Dates: start: 20120321
  5. CIALIS [Concomitant]
     Indication: ERECTILE DYSFUNCTION
     Route: 048
     Dates: start: 20120321
  6. LANTUS [Concomitant]
     Indication: TYPE 2 DIABETES MELLITUS
     Route: 058
     Dates: start: 20121105
  7. GEMFIBROZIL [Concomitant]
     Route: 048
  8. NOVOLOG FLEXPEN [Concomitant]

REACTIONS (1)
  - Pancreatic carcinoma [Recovered/Resolved]
